FAERS Safety Report 10457062 (Version 1)
Quarter: 2014Q3

REPORT INFORMATION
  Report Type: Spontaneous
  Country: US (occurrence: None)
  Receive Date: 20140828
  Receipt Date: 20140828
  Transmission Date: 20150326
  Serious: Yes (Other)
  Sender: FDA-Public Use
  Company Number: PHEH2013US023066

PATIENT
  Sex: Male

DRUGS (1)
  1. STARLIX [Suspect]
     Active Substance: NATEGLINIDE

REACTIONS (1)
  - Diabetes mellitus inadequate control [None]
